FAERS Safety Report 7945684-6 (Version None)
Quarter: 2011Q4

REPORT INFORMATION
  Report Type: 
  Country: None (occurrence: None)
  Receive Date: 20111129
  Receipt Date: 20111122
  Transmission Date: 20120403
  Serious: Yes (Hospitalization, Other)
  Sender: FDA-Public Use
  Company Number: US-PFIZER INC-2011286505

PATIENT
  Sex: Female

DRUGS (3)
  1. DEPO-PROVERA [Suspect]
     Indication: CONTRACEPTION
     Dosage: UNK
     Route: 051
     Dates: start: 20020101
  2. DIET FORMULATIONS FOR TREATMENT OF OBESITY [Suspect]
     Dosage: 3 DF, 2X/DAY
     Route: 048
     Dates: start: 20020101
  3. EPHEDRA [Suspect]
     Dosage: 3 DF, 2X/DAY
     Route: 048
     Dates: start: 20020101

REACTIONS (4)
  - UNINTENDED PREGNANCY [None]
  - PYELONEPHRITIS [None]
  - DRUG INEFFECTIVE [None]
  - UROSEPSIS [None]
